FAERS Safety Report 17774989 (Version 3)
Quarter: 2022Q1

REPORT INFORMATION
  Report Type: Report from Study
  Country: US (occurrence: US)
  Receive Date: 20200513
  Receipt Date: 20220322
  Transmission Date: 20220423
  Serious: No
  Sender: FDA-Public Use
  Company Number: US-ACADIA PHARMACEUTICALS INC.-ACA-2020-PIM-000316

PATIENT
  Age: 76 Year
  Sex: Male

DRUGS (4)
  1. NUPLAZID [Suspect]
     Active Substance: PIMAVANSERIN TARTRATE
     Indication: Parkinson^s disease psychosis
     Dosage: 34 MILLIGRAM, QD
     Route: 048
     Dates: start: 20200109
  2. NUPLAZID [Suspect]
     Active Substance: PIMAVANSERIN TARTRATE
     Indication: Hallucination
     Dosage: 34 MILLIGRAM, QD
     Route: 048
     Dates: start: 20200131, end: 2020
  3. NUPLAZID [Suspect]
     Active Substance: PIMAVANSERIN TARTRATE
     Indication: Delusion
     Dosage: 34 MILLIGRAM, QD
     Route: 048
  4. NUPLAZID [Suspect]
     Active Substance: PIMAVANSERIN TARTRATE
     Indication: Parkinson^s disease
     Dosage: 10 MILLIGRAM, QD
     Route: 048

REACTIONS (12)
  - Limb injury [Unknown]
  - Dementia Alzheimer^s type [Not Recovered/Not Resolved]
  - Freezing phenomenon [Unknown]
  - Movement disorder [Unknown]
  - Rib fracture [Not Recovered/Not Resolved]
  - Underdose [Recovered/Resolved]
  - Confusional state [Unknown]
  - Gait disturbance [Unknown]
  - Confusional state [Unknown]
  - Fall [Unknown]
  - Fall [Unknown]
  - Fall [Unknown]

NARRATIVE: CASE EVENT DATE: 20200101
